FAERS Safety Report 5733992-9 (Version None)
Quarter: 2008Q2

REPORT INFORMATION
  Report Type: 
  Country: None (occurrence: None)
  Receive Date: 20080509
  Receipt Date: 20080416
  Transmission Date: 20081010
  Serious: No
  Sender: FDA-Public Use
  Company Number: US-BOEHRINGER INGELHEIM GMBH, GERMANY-2008-BP-06025BP

PATIENT
  Age: 62 Year
  Sex: Female

DRUGS (2)
  1. AGGRENOX [Suspect]
     Indication: CEREBROVASCULAR ACCIDENT
     Route: 048
     Dates: start: 20080412
  2. PRAVACHOL [Concomitant]

REACTIONS (3)
  - MIGRAINE [None]
  - NAUSEA [None]
  - VOMITING [None]
